FAERS Safety Report 15852700 (Version 1)
Quarter: 2018Q4

REPORT INFORMATION
  Report Type: Spontaneous
  Country: US (occurrence: US)
  Receive Date: 20181226
  Receipt Date: 20181226
  Transmission Date: 20190205
  Serious: No
  Sender: FDA-Public Use
  Company Number: None

PATIENT
  Sex: Female

DRUGS (1)
  1. NORDITROPIN [Suspect]
     Active Substance: SOMATROPIN
     Indication: HYPOPITUITARISM
     Dosage: ?          OTHER STRENGTH:10MG/1.5M;OTHER DOSE:0.5 MG;?
     Route: 058
     Dates: start: 20180410

REACTIONS (10)
  - Swelling face [None]
  - Chills [None]
  - Night sweats [None]
  - Weight increased [None]
  - Feeling cold [None]
  - Tachyphrenia [None]
  - Rectal haemorrhage [None]
  - Hot flush [None]
  - Joint stiffness [None]
  - Muscular weakness [None]
